FAERS Safety Report 25198780 (Version 1)
Quarter: 2025Q2

REPORT INFORMATION
  Report Type: Spontaneous
  Country: JP (occurrence: JP)
  Receive Date: 20250415
  Receipt Date: 20250415
  Transmission Date: 20250717
  Serious: Yes (Other)
  Sender: GLAND PHARMA
  Company Number: JP-GLANDPHARMA-JP-2025GLNLIT01014

PATIENT
  Age: 32 Year
  Sex: Male

DRUGS (5)
  1. PACLITAXEL [Suspect]
     Active Substance: PACLITAXEL
     Indication: Angiosarcoma
     Route: 065
  2. ERIBULIN [Suspect]
     Active Substance: ERIBULIN
     Indication: Angiosarcoma
     Route: 065
  3. PAZOPANIB [Suspect]
     Active Substance: PAZOPANIB
     Indication: Angiosarcoma
     Route: 065
  4. DOXORUBICIN [Suspect]
     Active Substance: DOXORUBICIN
     Indication: Angiosarcoma
     Route: 065
  5. TRABECTEDIN [Suspect]
     Active Substance: TRABECTEDIN
     Indication: Angiosarcoma
     Route: 065

REACTIONS (3)
  - Pericarditis [Unknown]
  - Right ventricular failure [Unknown]
  - Product use in unapproved indication [Unknown]
